FAERS Safety Report 17651475 (Version 3)
Quarter: 2020Q2

REPORT INFORMATION
  Report Type: Report from Study
  Country: US (occurrence: US)
  Receive Date: 20200409
  Receipt Date: 20200515
  Transmission Date: 20200713
  Serious: Yes (Other)
  Sender: FDA-Public Use
  Company Number: NVSC2020US094335

PATIENT
  Age: 30 Year
  Sex: Male
  Weight: 113 kg

DRUGS (1)
  1. COSENTYX [Suspect]
     Active Substance: SECUKINUMAB
     Indication: PRODUCT USED FOR UNKNOWN INDICATION
     Dosage: 150 MG, QW
     Route: 042
     Dates: start: 20200309, end: 20200331

REACTIONS (7)
  - Arthralgia [Not Recovered/Not Resolved]
  - Disturbance in attention [Recovered/Resolved]
  - General physical health deterioration [Recovered/Resolved]
  - Incorrect route of product administration [Unknown]
  - Pain [Recovered/Resolved]
  - Mental impairment [Recovered/Resolved]
  - Gait disturbance [Recovered/Resolved]

NARRATIVE: CASE EVENT DATE: 20200310
